FAERS Safety Report 24944098 (Version 2)
Quarter: 2025Q1

REPORT INFORMATION
  Report Type: Spontaneous
  Country: JP (occurrence: JP)
  Receive Date: 20250207
  Receipt Date: 20250222
  Transmission Date: 20250408
  Serious: Yes (Other)
  Sender: ROCHE
  Company Number: JP-CHUGAI-2025003452

PATIENT
  Age: 63 Year
  Sex: Female

DRUGS (1)
  1. TECENTRIQ [Suspect]
     Active Substance: ATEZOLIZUMAB
     Indication: Non-small cell lung cancer
     Route: 042
     Dates: start: 20250115, end: 2025

REACTIONS (1)
  - Myelosuppression [Not Recovered/Not Resolved]
